FAERS Safety Report 5044353-2 (Version None)
Quarter: 2006Q2

REPORT INFORMATION
  Report Type: 
  Country: None (occurrence: None)
  Receive Date: 20060629
  Receipt Date: 20060616
  Transmission Date: 20061013
  Serious: Yes (Hospitalization)
  Sender: FDA-Public Use
  Company Number: 2006078126

PATIENT
  Age: 80 Year
  Sex: Female

DRUGS (9)
  1. LYRICA [Suspect]
     Indication: DIABETIC NEUROPATHY
     Dosage: 50 MG (50 MG, 1 IN 1 D), ORAL
     Route: 048
     Dates: start: 20060601
  2. TOREM (TORASEMIDE) [Concomitant]
  3. PANTOZOL (PANTOPRAZOLE SODIUM) [Concomitant]
  4. ACETYLSALICYLIC ACID SRT [Concomitant]
  5. BELOC-ZOC COMP (HYDROCHLOROTHIAZIDE, METOPROLOL SUCCINATE) [Concomitant]
  6. GLUCOPHAGE [Concomitant]
  7. TILIDINE (TILIDINE) [Concomitant]
  8. ARCOXIA [Concomitant]
  9. CALCIMAGON (CALCIUM CARBONATE) [Concomitant]

REACTIONS (3)
  - BRADYCARDIA [None]
  - DIZZINESS [None]
  - HYPOTENSION [None]
